FAERS Safety Report 17922374 (Version 2)
Quarter: 2020Q3

REPORT INFORMATION
  Report Type: Spontaneous
  Country: US (occurrence: US)
  Receive Date: 20200622
  Receipt Date: 20200720
  Transmission Date: 20201103
  Serious: No
  Sender: FDA-Public Use
  Company Number: US-PFIZER INC-2020239489

PATIENT
  Age: 43 Year
  Sex: Female

DRUGS (1)
  1. XELJANZ XR [Suspect]
     Active Substance: TOFACITINIB CITRATE
     Indication: RHEUMATOID ARTHRITIS
     Dosage: 11 MG, 1X/DAY (DAILY/TAKES IT AT NIGHT TIME)
     Route: 048
     Dates: start: 202004

REACTIONS (4)
  - Somnolence [Unknown]
  - Nausea [Unknown]
  - Decreased appetite [Unknown]
  - Stress at work [Unknown]
